FAERS Safety Report 7118201-0 (Version None)
Quarter: 2010Q4

REPORT INFORMATION
  Report Type: 
  Country: None (occurrence: None)
  Receive Date: 20101123
  Receipt Date: 20100608
  Transmission Date: 20110411
  Serious: No
  Sender: FDA-Public Use
  Company Number: US-MYLANLABS-2010S1010279

PATIENT
  Age: 76 Year
  Sex: Male

DRUGS (3)
  1. DOXAZOSIN TABLETS [Suspect]
     Route: 048
     Dates: start: 20100324, end: 20100401
  2. METOPROLOL TARTRATE [Concomitant]
  3. CITALOPRAM HYDROBROMIDE [Concomitant]

REACTIONS (2)
  - BLOOD PRESSURE INCREASED [None]
  - NOCTURIA [None]
